FAERS Safety Report 14084828 (Version 6)
Quarter: 2018Q2

REPORT INFORMATION
  Report Type: Report from Study
  Country: None (occurrence: US)
  Receive Date: 20171013
  Receipt Date: 20180516
  Transmission Date: 20180711
  Serious: Yes (Hospitalization)
  Sender: FDA-Public Use
  Company Number: US-ABBVIE-17P-163-2119608-00

PATIENT
  Age: 76 Year
  Sex: Male

DRUGS (5)
  1. LEVOTHYROXINE. [Concomitant]
     Active Substance: LEVOTHYROXINE
     Indication: PRODUCT USED FOR UNKNOWN INDICATION
     Dates: start: 20170804
  2. GABAPENTIN. [Concomitant]
     Active Substance: GABAPENTIN
     Indication: PRODUCT USED FOR UNKNOWN INDICATION
     Dates: start: 20170805
  3. MORPHINE [Concomitant]
     Active Substance: MORPHINE
     Indication: PRODUCT USED FOR UNKNOWN INDICATION
     Dates: start: 20170804
  4. VENETOCLAX. [Suspect]
     Active Substance: VENETOCLAX
     Indication: DIFFUSE LARGE B-CELL LYMPHOMA
     Dosage: DAY 1-21 EACH 21 DAY CYCLE. MOST RECENT DOSES PRIOR TO SAE^S:11SEP17+16SEP17
     Route: 048
     Dates: start: 20170828
  5. RO6870810 [Suspect]
     Active Substance: INVESTIGATIONAL PRODUCT
     Indication: DIFFUSE LARGE B-CELL LYMPHOMA
     Dosage: 14 DAY DOSING OF 21 DAY CYCLE. MOST RECENT DOSE PRIOR TO EVENT 11SEP17 AT 1500
     Route: 058
     Dates: start: 20170828

REACTIONS (1)
  - Syncope [Not Recovered/Not Resolved]

NARRATIVE: CASE EVENT DATE: 20170916
